FAERS Safety Report 9410168 (Version 1)
Quarter: 2013Q3

REPORT INFORMATION
  Report Type: Spontaneous
  Country: US (occurrence: US)
  Receive Date: 20130719
  Receipt Date: 20130719
  Transmission Date: 20140515
  Serious: No
  Sender: FDA-Public Use
  Company Number: US-US-EMD SERONO, INC.-7101348

PATIENT
  Age: 42 Year
  Sex: Female

DRUGS (2)
  1. REBIF [Suspect]
     Indication: MULTIPLE SCLEROSIS
     Route: 058
     Dates: start: 20111024
  2. IBUPROFEN [Concomitant]
     Indication: PREMEDICATION

REACTIONS (4)
  - Rib fracture [Recovered/Resolved]
  - Fall [Recovered/Resolved]
  - Balance disorder [Unknown]
  - Multiple sclerosis [Unknown]
